FAERS Safety Report 9425968 (Version 2)
Quarter: 2013Q3

REPORT INFORMATION
  Report Type: Report from Study
  Country: MX (occurrence: MX)
  Receive Date: 20130729
  Receipt Date: 20130807
  Transmission Date: 20140515
  Serious: Yes (Death, Hospitalization, Disabling)
  Sender: FDA-Public Use
  Company Number: MX-ROCHE-1254497

PATIENT
  Age: 32 Year
  Sex: Female
  Weight: 51 kg

DRUGS (1)
  1. XELODA [Suspect]
     Indication: COLORECTAL CANCER
     Dosage: 3-0-3
     Route: 048
     Dates: start: 2012

REACTIONS (3)
  - Disease progression [Fatal]
  - Dehydration [Recovered/Resolved]
  - Pain [Not Recovered/Not Resolved]
